FAERS Safety Report 7734096-6 (Version None)
Quarter: 2011Q3

REPORT INFORMATION
  Report Type: 
  Country: None (occurrence: None)
  Receive Date: 20110907
  Receipt Date: 20110831
  Transmission Date: 20111222
  Serious: Yes (Death, Other)
  Sender: FDA-Public Use
  Company Number: CH-PFIZER INC-2011183314

PATIENT
  Age: 68 Year
  Sex: Male

DRUGS (3)
  1. TRACLEER [Concomitant]
  2. ILOMEDIN [Concomitant]
  3. SILDENAFIL CITRATE [Suspect]
     Indication: PULMONARY ARTERIAL HYPERTENSION
     Dosage: 50 MG, 3X/DAY

REACTIONS (4)
  - SYNCOPE [None]
  - CARDIAC FAILURE [None]
  - DISEASE PROGRESSION [None]
  - PULMONARY HYPERTENSION [None]
